FAERS Safety Report 6098664-2 (Version None)
Quarter: 2009Q1

REPORT INFORMATION
  Report Type: 
  Country: None (occurrence: None)
  Receive Date: 20090302
  Receipt Date: 20090130
  Transmission Date: 20090719
  Serious: Yes (Death)
  Sender: FDA-Public Use
  Company Number: US-TYCO HEALTHCARE/MALLINCKRODT-T200900336

PATIENT
  Age: 40 Year
  Sex: Female

DRUGS (5)
  1. OXYCODONE [Suspect]
     Route: 065
  2. FENTANYL [Suspect]
     Route: 065
  3. ETHANOL [Suspect]
     Route: 065
  4. PAROXETINE HCL [Suspect]
     Route: 065
  5. ZOLPIDEM [Suspect]
     Route: 065

REACTIONS (1)
  - CARDIO-RESPIRATORY ARREST [None]
